FAERS Safety Report 18277955 (Version 1)
Quarter: 2020Q3

REPORT INFORMATION
  Report Type: Spontaneous
  Country: TN (occurrence: TN)
  Receive Date: 20200917
  Receipt Date: 20200917
  Transmission Date: 20201103
  Serious: Yes (Other)
  Sender: FDA-Public Use
  Company Number: TN-GEHPL-2020CSU004059AA

PATIENT

DRUGS (2)
  1. OMNIPAQUE [Suspect]
     Active Substance: IOHEXOL
     Indication: PROSTATE CANCER
  2. OMNIPAQUE [Suspect]
     Active Substance: IOHEXOL
     Indication: DIAGNOSTIC PROCEDURE
     Dosage: 50 ML, SINGLE
     Route: 042
     Dates: start: 20200903, end: 20200903

REACTIONS (3)
  - Fatigue [Unknown]
  - Disorientation [Unknown]
  - Loss of consciousness [Unknown]

NARRATIVE: CASE EVENT DATE: 202009
